FAERS Safety Report 20642627 (Version 4)
Quarter: 2022Q3

REPORT INFORMATION
  Report Type: Report from Study
  Country: US (occurrence: US)
  Receive Date: 20220328
  Receipt Date: 20220804
  Transmission Date: 20221026
  Serious: No
  Sender: FDA-Public Use
  Company Number: US-NOVARTISTESTPH-NVSC2022US069515

PATIENT
  Sex: Male

DRUGS (2)
  1. ENTRESTO [Suspect]
     Active Substance: SACUBITRIL\VALSARTAN
     Indication: Blood cholesterol increased
     Dosage: 1 DOSAGE FORM, BID (24/26 MG)
     Route: 048
     Dates: start: 202202
  2. ENTRESTO [Suspect]
     Active Substance: SACUBITRIL\VALSARTAN
     Indication: Arterial occlusive disease
     Dosage: 0.5 DOSAGE FORM, BID (24/26 MG, 1/2 TAB)
     Route: 048

REACTIONS (8)
  - Weight decreased [Unknown]
  - Muscle atrophy [Unknown]
  - Hypotension [Recovering/Resolving]
  - Dizziness [Recovering/Resolving]
  - Weight increased [Unknown]
  - Off label use [Unknown]
  - Prescribed underdose [Unknown]
  - Wrong technique in product usage process [Unknown]
